FAERS Safety Report 25445893 (Version 1)
Quarter: 2025Q2

REPORT INFORMATION
  Report Type: Spontaneous
  Country: GB (occurrence: GB)
  Receive Date: 20250617
  Receipt Date: 20250617
  Transmission Date: 20250717
  Serious: Yes (Disabling, Other)
  Sender: SANDOZ
  Company Number: None

PATIENT
  Age: 21 Year
  Sex: Female
  Weight: 53 kg

DRUGS (3)
  1. OLANZAPINE [Suspect]
     Active Substance: OLANZAPINE
     Indication: Adverse drug reaction
     Route: 065
     Dates: start: 20241212
  2. OLANZAPINE [Suspect]
     Active Substance: OLANZAPINE
     Indication: Migraine
     Route: 065
     Dates: start: 202412, end: 202503
  3. OLANZAPINE [Suspect]
     Active Substance: OLANZAPINE
     Indication: Suicidal ideation

REACTIONS (1)
  - Insomnia [Not Recovered/Not Resolved]

NARRATIVE: CASE EVENT DATE: 20250209
